FAERS Safety Report 8505104-X (Version None)
Quarter: 2012Q3

REPORT INFORMATION
  Report Type: 
  Country: None (occurrence: None)
  Receive Date: 20120712
  Receipt Date: 20120703
  Transmission Date: 20120928
  Serious: Yes (Hospitalization, Other)
  Sender: FDA-Public Use
  Company Number: PHHY2009BR44524

PATIENT
  Age: 58 Year
  Sex: Female
  Weight: 100 kg

DRUGS (7)
  1. FORMOTEROL FUMARATE [Suspect]
     Indication: DYSPNOEA
     Dosage: 1 INHALATION WITH EACH ACTIVE PRINCIPLE
  2. DILTIAZEM [Concomitant]
     Indication: CARDIAC DISORDER
     Dosage: 1 DF, BID
  3. LIPITOR [Concomitant]
     Indication: CARDIAC DISORDER
     Dosage: 40 MG AT NIGHT
  4. LEVOTHYROXINE SODIUM [Concomitant]
     Indication: CARDIAC DISORDER
     Dosage: 1 DF, IN THE MORNING
  5. DIOVAN [Concomitant]
     Dosage: 300 MG, UNK
  6. CLONIDINE HYDROCHLORIDE [Concomitant]
     Indication: CARDIAC DISORDER
     Dosage: 1 DF, TID
  7. WARFARIN SODIUM [Concomitant]
     Indication: CARDIAC DISORDER
     Dosage: 1 DF, QD

REACTIONS (6)
  - CARDIAC DISORDER [None]
  - NERVOUSNESS [None]
  - HEART RATE INCREASED [None]
  - LUNG DISORDER [None]
  - ARRHYTHMIA [None]
  - ATRIAL FIBRILLATION [None]
